FAERS Safety Report 13101509 (Version 1)
Quarter: 2017Q1

REPORT INFORMATION
  Report Type: Spontaneous
  Country: FR (occurrence: FR)
  Receive Date: 20170110
  Receipt Date: 20170110
  Transmission Date: 20170428
  Serious: Yes (Other)
  Sender: FDA-Public Use
  Company Number: FR-PFIZER INC-2017005137

PATIENT
  Age: 73 Year
  Sex: Female

DRUGS (9)
  1. ADRIBLASTINE [Suspect]
     Active Substance: DOXORUBICIN
     Indication: LYMPHOMA
     Dosage: UNK
     Dates: start: 2005
  2. INIPOMP [Concomitant]
     Active Substance: PANTOPRAZOLE SODIUM
     Dosage: 20 MG, 1X/DAY
  3. OROCAL VITAMINE D3 [Concomitant]
     Active Substance: CALCIUM CARBONATE\CHOLECALCIFEROL
     Dosage: 500 MG, 1X/DAY
  4. ENDOTELON [Concomitant]
     Active Substance: HERBALS
  5. ENDOXAN [Suspect]
     Active Substance: CYCLOPHOSPHAMIDE
     Indication: LYMPHOMA
     Dosage: UNK
     Dates: start: 2005
  6. ONCOVIN [Suspect]
     Active Substance: VINCRISTINE SULFATE
     Indication: LYMPHOMA
     Dosage: UNK
     Dates: start: 2005
  7. STRUCTOFLEX [Concomitant]
     Active Substance: GLUCOSAMINE
     Dosage: 2 DF, DAILY
  8. XYZALL [Concomitant]
     Active Substance: LEVOCETIRIZINE DIHYDROCHLORIDE
     Dosage: 5 MG, 1X/DAY
  9. SIMVASTATIN. [Concomitant]
     Active Substance: SIMVASTATIN
     Dosage: 20 MG, 1X/DAY

REACTIONS (13)
  - Dry mouth [Unknown]
  - Muscle spasms [Unknown]
  - Balance disorder [Unknown]
  - Poor quality sleep [Unknown]
  - Paraesthesia [Unknown]
  - Nocturia [Unknown]
  - Cognitive disorder [Unknown]
  - Night sweats [Unknown]
  - Neuropathy peripheral [Unknown]
  - Hypoacusis [Unknown]
  - Depression [Unknown]
  - Vestibular disorder [Unknown]
  - Sleep apnoea syndrome [Unknown]

NARRATIVE: CASE EVENT DATE: 2016
